FAERS Safety Report 6188164-3 (Version None)
Quarter: 2009Q2

REPORT INFORMATION
  Report Type: 
  Country: None (occurrence: None)
  Receive Date: 20090513
  Receipt Date: 20090115
  Transmission Date: 20091009
  Serious: No
  Sender: FDA-Public Use
  Company Number: A0763784A

PATIENT
  Age: 51 Year
  Sex: Female

DRUGS (4)
  1. DYNACIRC CR [Suspect]
     Indication: HYPERTENSION
     Dosage: 10MG PER DAY
     Route: 048
     Dates: start: 19940101
  2. EFFEXOR [Concomitant]
  3. POTASSIUM CHLORIDE [Concomitant]
  4. ASPIRIN [Concomitant]

REACTIONS (2)
  - HEART RATE INCREASED [None]
  - HOT FLUSH [None]
